FAERS Safety Report 6311753-X (Version None)
Quarter: 2009Q3

REPORT INFORMATION
  Report Type: 
  Country: None (occurrence: None)
  Receive Date: 20090817
  Receipt Date: 20090811
  Transmission Date: 20100115
  Serious: Yes (Other)
  Sender: FDA-Public Use
  Company Number: PHEH2009US09182

PATIENT
  Sex: Male

DRUGS (8)
  1. DIOVAN [Suspect]
     Dosage: 160 MG, UNK
     Dates: start: 20090612
  2. DIOVAN [Suspect]
     Dosage: 80 MG, UNK
  3. LENOXIN [Concomitant]
     Dosage: 0.125 MG, UNK
  4. AMIODARONE HCL [Concomitant]
     Dosage: 200 MG, UNK
  5. COUMADIN [Concomitant]
     Dosage: 5 MG, UNK
  6. PRANTAL [Concomitant]
     Dosage: 400 MG, UNK
  7. MOBIC [Concomitant]
     Dosage: 15 MG, UNK
  8. DARVOCET-N 100 [Concomitant]
     Dosage: 650 MG, UNK

REACTIONS (4)
  - AMNESIA [None]
  - DIZZINESS [None]
  - EYE MOVEMENT DISORDER [None]
  - HYPOTENSION [None]
